FAERS Safety Report 8937921 (Version 1)
Quarter: 2012Q4

REPORT INFORMATION
  Report Type: 
  Country: US (occurrence: US)
  Receive Date: 20121130
  Receipt Date: 20121130
  Transmission Date: 20130627
  Serious: No
  Sender: FDA-Public Use
  Company Number: US-VERTEX PHARMACEUTICAL INC.-2012-025368

PATIENT
  Sex: Female
  Weight: 70 kg

DRUGS (3)
  1. VX-950 (TELAPREVIR) [Suspect]
     Indication: HEPATITIS C
     Dosage: 750 mg, tid
     Route: 048
     Dates: start: 201211
  2. PEGASYS [Concomitant]
     Indication: HEPATITIS C
     Dosage: 90 ?g, qw
     Route: 058
     Dates: start: 201201
  3. RIBAVIRIN [Concomitant]
     Indication: HEPATITIS C
     Dosage: 400 mg, bid
     Route: 048
     Dates: start: 201201

REACTIONS (2)
  - Anorectal discomfort [Unknown]
  - Nausea [Unknown]
